FAERS Safety Report 23472168 (Version 1)
Quarter: 2024Q1

REPORT INFORMATION
  Report Type: Spontaneous
  Country: DK (occurrence: DK)
  Receive Date: 20240202
  Receipt Date: 20240202
  Transmission Date: 20240409
  Serious: Yes (Death)
  Sender: FDA-Public Use
  Company Number: None

PATIENT
  Age: 53 Year
  Sex: Male

DRUGS (8)
  1. MORPHINE SULFATE [Suspect]
     Active Substance: MORPHINE SULFATE
     Indication: Pain
     Dosage: DOSAGE: IN TOTAL 5 MG ON 23APR2023, GIVEN IN SEVERAL SMALL DOSES
     Route: 065
     Dates: start: 20230423, end: 20230423
  2. OXYCODONE HYDROCHLORIDE [Suspect]
     Active Substance: OXYCODONE HYDROCHLORIDE
     Indication: Pain
     Dosage: STRENGTH: UNKNOWN. DOSAGE: UNKNOWN
     Route: 065
     Dates: start: 20230424
  3. CHLORDIAZEPOXIDE [Suspect]
     Active Substance: CHLORDIAZEPOXIDE
     Indication: Alcohol withdrawal syndrome
     Dosage: STRENGTH: UNKNOWN. DOSAGE: 50-100 MG, CALCULATED ACCORDING TO WITHDRAWAL SYMPTOMS SCORE
     Route: 048
     Dates: start: 20230423
  4. OLANZAPINE [Concomitant]
     Active Substance: OLANZAPINE
     Indication: Sedative therapy
     Dosage: UNK
     Route: 065
     Dates: start: 20230427
  5. LOSARTAN [Concomitant]
     Active Substance: LOSARTAN
     Indication: Hypertension
     Dosage: STRENGTH: 50 MG
     Route: 065
     Dates: start: 202302
  6. ACETAMINOPHEN [Concomitant]
     Active Substance: ACETAMINOPHEN
     Indication: Pain
     Dosage: UNK
     Route: 065
     Dates: start: 20230424
  7. XARELTO [Concomitant]
     Active Substance: RIVAROXABAN
     Indication: Thrombosis prophylaxis
     Dosage: UNK
     Route: 065
     Dates: start: 20170529
  8. ASPIRIN [Concomitant]
     Active Substance: ASPIRIN
     Indication: Thrombosis prophylaxis
     Dosage: UNK
     Route: 065
     Dates: start: 20160504

REACTIONS (1)
  - Cardiac arrest [Fatal]

NARRATIVE: CASE EVENT DATE: 20230429
